FAERS Safety Report 25498520 (Version 1)
Quarter: 2025Q3

REPORT INFORMATION
  Report Type: Spontaneous
  Country: CN (occurrence: CN)
  Receive Date: 20250701
  Receipt Date: 20250701
  Transmission Date: 20251020
  Serious: Yes (Hospitalization, Other)
  Sender: RANBAXY
  Company Number: CN-SUN PHARMACEUTICAL INDUSTRIES LTD-2025R1-514590

PATIENT
  Age: 19 Year
  Sex: Female

DRUGS (1)
  1. CYPROTERONE ACETATE\ETHINYL ESTRADIOL [Suspect]
     Active Substance: CYPROTERONE ACETATE\ETHINYL ESTRADIOL
     Indication: Haemostasis
     Route: 065

REACTIONS (2)
  - Uterine haemorrhage [Unknown]
  - Urinary retention [Unknown]
